FAERS Safety Report 8488415-6 (Version None)
Quarter: 2012Q3

REPORT INFORMATION
  Report Type: 
  Country: None (occurrence: None)
  Receive Date: 20120705
  Receipt Date: 20120627
  Transmission Date: 20120928
  Serious: Yes (Hospitalization, Other)
  Sender: FDA-Public Use
  Company Number: JP-B.I. PHARMACEUTICALS,INC./RIDGEFIELD-2012-EU-03425GD

PATIENT
  Age: 51 Year
  Sex: Female

DRUGS (5)
  1. TELMISARTAN [Suspect]
     Indication: HYPERTENSION
     Dosage: 40 MG
     Route: 048
     Dates: start: 20110328, end: 20110822
  2. NIFEDIPINE [Suspect]
     Indication: HYPERTENSION
     Dosage: 20 MG
     Route: 048
     Dates: start: 20110328
  3. TRICHLORMETHIAZIDE [Suspect]
     Indication: HYPERTENSION
     Dosage: 2 MG
     Route: 048
     Dates: start: 20110328, end: 20110929
  4. NIFEDIPINE [Suspect]
     Dosage: 40 MG
     Route: 048
     Dates: end: 20111017
  5. TELMISARTAN [Suspect]
     Dosage: 60 MG
     Route: 048
     Dates: start: 20110823, end: 20111017

REACTIONS (4)
  - HYPOKALAEMIA [None]
  - PRIMARY HYPERALDOSTERONISM [None]
  - ADRENAL MASS [None]
  - BLOOD PRESSURE INADEQUATELY CONTROLLED [None]
